FAERS Safety Report 7360201-X (Version None)
Quarter: 2011Q1

REPORT INFORMATION
  Report Type: 
  Country: None (occurrence: None)
  Receive Date: 20110307
  Receipt Date: 20110218
  Transmission Date: 20110831
  Serious: Yes (Disabling)
  Sender: FDA-Public Use
  Company Number: 2011000940

PATIENT
  Age: 63 Year
  Sex: Female

DRUGS (3)
  1. ERLOTINIB (ERLOTINIB)(TABLET) (ERLOTINIB) [Suspect]
     Indication: LUNG ADENOCARCINOMA
     Dosage: 150 MG, QD,ORAL
     Route: 048
     Dates: start: 20090819, end: 20101013
  2. SYMMETREL [Concomitant]
  3. RINDERON (BETHAMETHASONE) [Concomitant]

REACTIONS (3)
  - DERMATITIS ACNEIFORM [None]
  - SKIN DISORDER [None]
  - HAEMOGLOBIN DECREASED [None]
